FAERS Safety Report 4486611-6 (Version None)
Quarter: 2004Q4

REPORT INFORMATION
  Report Type: 
  Country: None (occurrence: None)
  Receive Date: 20041027
  Receipt Date: 20041020
  Transmission Date: 20050328
  Serious: Yes (Other)
  Sender: FDA-Public Use
  Company Number: PHBS2004JP14102

PATIENT
  Age: 61 Year
  Sex: Female

DRUGS (2)
  1. GLEEVEC [Suspect]
     Indication: CHRONIC MYELOID LEUKAEMIA
     Route: 048
     Dates: start: 20011101
  2. NSAID'S [Suspect]
     Route: 065

REACTIONS (2)
  - BLISTER [None]
  - PSEUDOPORPHYRIA [None]
